FAERS Safety Report 8891190 (Version 2)
Quarter: 2012Q4

REPORT INFORMATION
  Report Type: 
  Country: US (occurrence: US)
  Receive Date: 20121107
  Receipt Date: 20121115
  Transmission Date: 20130627
  Serious: No
  Sender: FDA-Public Use
  Company Number: US-PFIZER INC-2012277769

PATIENT

DRUGS (1)
  1. LYRICA [Suspect]

REACTIONS (2)
  - Gastrointestinal disorder [Unknown]
  - Influenza [Unknown]
